FAERS Safety Report 9049046 (Version 1)
Quarter: 2013Q1

REPORT INFORMATION
  Report Type: Spontaneous
  Country: US (occurrence: None)
  Receive Date: 20130129
  Receipt Date: 20130129
  Transmission Date: 20140127
  Serious: No
  Sender: FDA-Public Use
  Company Number: None

PATIENT
  Age: 49 Year
  Sex: Female
  Weight: 60.33 kg

DRUGS (2)
  1. ACULAR LS [Suspect]
     Indication: UVEITIS
     Dosage: QID, OS
     Dates: start: 20120519, end: 20120529
  2. ACULAR LS [Suspect]
     Indication: CATARACT
     Dosage: QID, OS
     Dates: start: 20120519, end: 20120529

REACTIONS (5)
  - Cystoid macular oedema [None]
  - Uveitis [None]
  - Condition aggravated [None]
  - Product substitution issue [None]
  - Visual impairment [None]
